FAERS Safety Report 8115806-5 (Version None)
Quarter: 2011Q4

REPORT INFORMATION
  Report Type: 
  Country: None (occurrence: None)
  Receive Date: 20111227
  Receipt Date: 20110831
  Transmission Date: 20120403
  Serious: Yes (Other)
  Sender: FDA-Public Use
  Company Number: PHHY2011US23425

PATIENT
  Age: 50 Year
  Sex: Female
  Weight: 68 kg

DRUGS (8)
  1. ZYRTEC [Concomitant]
  2. ASPIRIN [Concomitant]
  3. GILENYA [Suspect]
     Indication: MULTIPLE SCLEROSIS
     Dosage: 0.5 MG, QD, ORAL
     Route: 048
     Dates: start: 20110113
  4. TOPROL-XL [Concomitant]
  5. UNIVASC [Concomitant]
  6. TODVOL [Concomitant]
  7. MULTIVITAMINS (ASCORBIC ACID, ERGOCALCIFEROL, FOLIC ACID, NICOTINAMIDE [Concomitant]
  8. NECON (ETHINYLESTRADIOL, NORETHISTERONE) [Concomitant]

REACTIONS (10)
  - LARYNGITIS [None]
  - PYREXIA [None]
  - OROPHARYNGEAL PAIN [None]
  - LYMPHOCYTE COUNT DECREASED [None]
  - FATIGUE [None]
  - NASOPHARYNGITIS [None]
  - COUGH [None]
  - BRONCHITIS [None]
  - VIRAL INFECTION [None]
  - MALAISE [None]
